FAERS Safety Report 6152101-8 (Version None)
Quarter: 2009Q2

REPORT INFORMATION
  Report Type: 
  Country: None (occurrence: None)
  Receive Date: 20090410
  Receipt Date: 20090325
  Transmission Date: 20091009
  Serious: Yes (Death)
  Sender: FDA-Public Use
  Company Number: US-GENENTECH-280733

PATIENT
  Age: 54 Year
  Sex: Female

DRUGS (1)
  1. ACTIVASE [Suspect]
     Indication: CEREBRAL HAEMORRHAGE
     Dosage: 2 MG, Q12H
     Route: 050

REACTIONS (1)
  - DEATH [None]
